FAERS Safety Report 9571054 (Version 5)
Quarter: 2014Q1

REPORT INFORMATION
  Report Type: Spontaneous
  Country: US (occurrence: US)
  Receive Date: 20131001
  Receipt Date: 20140106
  Transmission Date: 20141002
  Serious: Yes (Hospitalization, Disabling)
  Sender: FDA-Public Use
  Company Number: US-JNJFOC-20130915146

PATIENT
  Age: 69 Year
  Sex: Female
  Weight: 72.58 kg

DRUGS (6)
  1. XARELTO [Suspect]
     Indication: CEREBROVASCULAR ACCIDENT PROPHYLAXIS
     Route: 048
     Dates: start: 20120807, end: 201309
  2. XARELTO [Suspect]
     Indication: ATRIAL FIBRILLATION
     Route: 048
     Dates: start: 20120807, end: 201309
  3. CARVEDILOL [Concomitant]
     Indication: HYPERTENSION
     Dosage: LONG TERM
     Route: 065
  4. ATORVASTATIN [Concomitant]
     Indication: HYPERLIPIDAEMIA
     Route: 065
  5. ESTROGEN [Concomitant]
     Route: 065
  6. LEVOTHYROXINE [Concomitant]
     Dosage: 100 MCG
     Route: 065

REACTIONS (3)
  - Cerebrovascular accident [Recovering/Resolving]
  - Haemorrhagic cerebral infarction [Unknown]
  - Platelet count decreased [Unknown]
